FAERS Safety Report 24221525 (Version 4)
Quarter: 2025Q4

REPORT INFORMATION
  Report Type: Report from Study
  Country: BR (occurrence: BR)
  Receive Date: 20240819
  Receipt Date: 20251201
  Transmission Date: 20260118
  Serious: Yes (Other)
  Sender: TAKEDA
  Company Number: BR-TAKEDA-2023TUS054233

PATIENT
  Age: 49 Year
  Sex: Female

DRUGS (5)
  1. VEDOLIZUMAB [Suspect]
     Active Substance: VEDOLIZUMAB
     Indication: Colitis ulcerative
     Dosage: 300 MILLIGRAM, Q4WEEKS
     Dates: start: 20230420
  2. VEDOLIZUMAB [Suspect]
     Active Substance: VEDOLIZUMAB
     Dosage: 300 MILLIGRAM
  3. MESALAMINE [Suspect]
     Active Substance: MESALAMINE
     Indication: Crohn^s disease
     Dosage: 800 MILLIGRAM
  4. DIPYRONE [Concomitant]
     Active Substance: DIPYRONE
     Indication: Pain
     Dosage: 50 MILLIGRAM
  5. CYCLOBENZAPRINE [Concomitant]
     Active Substance: CYCLOBENZAPRINE
     Dosage: 5 MILLIGRAM, QD

REACTIONS (26)
  - Tuberculosis [Unknown]
  - Pneumonia [Recovered/Resolved]
  - Weight increased [Recovered/Resolved]
  - Influenza [Not Recovered/Not Resolved]
  - Weight decreased [Unknown]
  - Inappropriate schedule of product administration [Unknown]
  - Product distribution issue [Unknown]
  - Rhinitis [Unknown]
  - Atelectasis [Unknown]
  - Lung opacity [Unknown]
  - Diarrhoea [Unknown]
  - Haemorrhage [Unknown]
  - Pain [Unknown]
  - Lactose intolerance [Unknown]
  - Intervertebral disc protrusion [Unknown]
  - Osteoarthritis [Unknown]
  - Tendonitis [Unknown]
  - Poor quality sleep [Unknown]
  - Hyperphagia [Unknown]
  - Weight gain poor [Unknown]
  - Malaise [Unknown]
  - Fibromyalgia [Unknown]
  - Hot flush [Unknown]
  - Sinusitis [Unknown]
  - Peripheral swelling [Unknown]
  - Fluid retention [Unknown]

NARRATIVE: CASE EVENT DATE: 20231201
